FAERS Safety Report 7672941-3 (Version None)
Quarter: 2011Q3

REPORT INFORMATION
  Report Type: 
  Country: None (occurrence: None)
  Receive Date: 20110809
  Receipt Date: 20110801
  Transmission Date: 20111222
  Serious: Yes (Other)
  Sender: FDA-Public Use
  Company Number: BR-GENENTECH-310473

PATIENT
  Sex: Female
  Weight: 58 kg

DRUGS (2)
  1. CORTISONE ACETATE [Concomitant]
     Indication: PRODUCT USED FOR UNKNOWN INDICATION
     Dosage: 5 MG, UNK
  2. RITUXIMAB [Suspect]
     Indication: RHEUMATOID ARTHRITIS
     Dosage: UNK
     Route: 042
     Dates: start: 20100527, end: 20110301

REACTIONS (7)
  - IMPAIRED HEALING [None]
  - KNEE DEFORMITY [None]
  - INFLUENZA [None]
  - IRRITABILITY [None]
  - ASTHENIA [None]
  - THERAPEUTIC RESPONSE DECREASED [None]
  - VERTIGO [None]
